FAERS Safety Report 9140478 (Version 2)
Quarter: 2013Q3

REPORT INFORMATION
  Report Type: Spontaneous
  Country: US (occurrence: US)
  Receive Date: 20130305
  Receipt Date: 20130815
  Transmission Date: 20140515
  Serious: Yes (Hospitalization)
  Sender: FDA-Public Use
  Company Number: US-BAYER-2013-027573

PATIENT
  Age: 38 Year
  Sex: Female
  Weight: 81.18 kg

DRUGS (20)
  1. GIANVI [Suspect]
     Indication: CONTRACEPTION
     Dosage: UNK
     Dates: start: 200906, end: 201103
  2. YAZ [Suspect]
     Indication: CONTRACEPTION
  3. IMITREX [Concomitant]
  4. VERAMYST [Concomitant]
  5. PROAIR HFA [Concomitant]
  6. DEXAMETHASONE [Concomitant]
  7. SOLU-MEDROL [Concomitant]
  8. OXYGEN [Concomitant]
  9. MIDODRINE [Concomitant]
     Indication: HYPOTENSION
     Dosage: 5 MG, BID
     Dates: start: 20110228, end: 20110312
  10. VENTOLIN HFA [Concomitant]
     Indication: ASTHMA
     Dosage: AS NEEDED
     Dates: start: 20110228, end: 20110312
  11. TOPIRAMATE [Concomitant]
     Indication: MIGRAINE
     Dosage: 50 MG, 1 TABLET TWICE DAILY
     Route: 048
     Dates: start: 20110228, end: 20110312
  12. SUMATRIPTAN [Concomitant]
     Indication: MIGRAINE
     Dosage: 50 MG, I TABLET TWICE DAILY
     Route: 048
     Dates: start: 20110228, end: 20110312
  13. SINGULAIR [Concomitant]
     Indication: ASTHMA
     Dosage: 10 MG, 1 TABLET ONCE A DAY
     Route: 048
     Dates: start: 20110302, end: 20110312
  14. AZITHROMYCIN [Concomitant]
     Indication: BRONCHITIS
     Dosage: 250 MG, UNK
     Dates: start: 20110304, end: 20110312
  15. BENZONATATE [Concomitant]
     Indication: BRONCHITIS
     Dosage: 200 MG, ONE CAPSULE THREE TIMES DAILY AS NEEDED
     Route: 048
     Dates: start: 20110304, end: 20110312
  16. PREDNISONE [Concomitant]
     Indication: ASTHMA
     Dosage: 20 MG, 1 TABLET TWICE DAILY FOR 5 DAYS
     Route: 048
     Dates: start: 20110304, end: 20110312
  17. PREDNISONE [Concomitant]
     Indication: ASTHMA
     Dosage: 10 MG, UNK
     Dates: start: 20110304, end: 20110312
  18. LEVAQUIN [Concomitant]
     Indication: BRONCHITIS
     Dosage: 500 MG, 1 TABLET DAILY FOR 7 DAYS
     Dates: start: 20110309, end: 20110312
  19. ALBUTEROL [Concomitant]
     Dosage: 0.083 %, USE ONE UNIT DOSE IN NEBULIZER EVERY 4 HOURS AS NEEDED
  20. ADVAIR DISKUS [Concomitant]
     Dosage: 250/50 NCG, USE ONE INHALATION TWICE DAILY
     Route: 048

REACTIONS (4)
  - Pulmonary embolism [Recovered/Resolved]
  - Injury [Recovered/Resolved]
  - Pain [Recovered/Resolved]
  - Dyspnoea [Recovered/Resolved]
